FAERS Safety Report 15478424 (Version 1)
Quarter: 2018Q4

REPORT INFORMATION
  Report Type: Spontaneous
  Country: GB (occurrence: GB)
  Receive Date: 20181009
  Receipt Date: 20181009
  Transmission Date: 20190205
  Serious: Yes (Death, Hospitalization, Other)
  Sender: FDA-Public Use
  Company Number: GB-PFIZER INC-2018398736

PATIENT
  Age: 16 Year
  Sex: Male

DRUGS (1)
  1. XANAX [Suspect]
     Active Substance: ALPRAZOLAM
     Indication: SELF-MEDICATION
     Dosage: UNK

REACTIONS (2)
  - Completed suicide [Fatal]
  - Dependence [Unknown]

NARRATIVE: CASE EVENT DATE: 201610
